FAERS Safety Report 7641202-0 (Version None)
Quarter: 2011Q3

REPORT INFORMATION
  Report Type: 
  Country: None (occurrence: None)
  Receive Date: 20110728
  Receipt Date: 20110720
  Transmission Date: 20111222
  Serious: Yes (Hospitalization)
  Sender: FDA-Public Use
  Company Number: PHHY2011ES65156

PATIENT
  Age: 23 Year
  Sex: Male

DRUGS (3)
  1. TRILEPTAL [Suspect]
     Indication: EPILEPSY
     Dosage: 1.8 G, DAILY
     Route: 048
     Dates: start: 20060401
  2. DEPAKENE [Interacting]
     Indication: EPILEPSY
     Dosage: 1 G, DAILY
     Route: 048
     Dates: start: 20110502, end: 20110509
  3. ZONEGRAN [Interacting]
     Indication: EPILEPSY
     Dosage: 400 MG, DAILY
     Route: 048
     Dates: start: 20110428

REACTIONS (4)
  - SOMNOLENCE [None]
  - TREMOR [None]
  - ENCEPHALOPATHY [None]
  - DRUG INTERACTION [None]
